FAERS Safety Report 16462413 (Version 1)
Quarter: 2019Q2

REPORT INFORMATION
  Report Type: Spontaneous
  Country: US (occurrence: US)
  Receive Date: 20190511
  Receipt Date: 20190511
  Transmission Date: 20190711
  Serious: No
  Sender: FDA-Public Use
  Company Number: None

PATIENT
  Age: 57 Year
  Sex: Male

DRUGS (1)
  1. OXACILLIN SODIUM [Suspect]
     Active Substance: OXACILLIN SODIUM
     Indication: CELLULITIS
     Route: 042
     Dates: start: 20190330, end: 20190506

REACTIONS (2)
  - Pruritus generalised [None]
  - Rash generalised [None]

NARRATIVE: CASE EVENT DATE: 20190504
